FAERS Safety Report 24564325 (Version 2)
Quarter: 2024Q4

REPORT INFORMATION
  Report Type: Spontaneous
  Country: CN (occurrence: CN)
  Receive Date: 20241030
  Receipt Date: 20241031
  Transmission Date: 20250115
  Serious: Yes (Hospitalization, Disabling)
  Sender: ROCHE
  Company Number: CN-BoehringerIngelheim-2024-BI-059003

PATIENT
  Age: 88 Year
  Sex: Female
  Weight: 51.1 kg

DRUGS (4)
  1. ALTEPLASE [Suspect]
     Active Substance: ALTEPLASE
     Indication: Cerebrovascular disorder
     Route: 042
     Dates: start: 20241022, end: 20241022
  2. ALTEPLASE [Suspect]
     Active Substance: ALTEPLASE
     Route: 042
     Dates: start: 20241022, end: 20241022
  3. Edaravone and Dexborneol Concentrated Solution for Injection [Concomitant]
     Indication: Cerebrovascular disorder
     Route: 042
     Dates: start: 20241022, end: 20241022
  4. SODIUM CHLORIDE [Concomitant]
     Active Substance: SODIUM CHLORIDE
     Indication: Cerebrovascular disorder
     Route: 042
     Dates: start: 20241022, end: 20241022

REACTIONS (4)
  - Cerebral haemorrhage [Unknown]
  - Skin swelling [Unknown]
  - Haemorrhage [Unknown]
  - Atrial fibrillation [Unknown]

NARRATIVE: CASE EVENT DATE: 20241022
